FAERS Safety Report 7322183-6 (Version None)
Quarter: 2011Q1

REPORT INFORMATION
  Report Type: 
  Country: None (occurrence: None)
  Receive Date: 20110228
  Receipt Date: 20110217
  Transmission Date: 20110831
  Serious: Yes (Death, Other)
  Sender: FDA-Public Use
  Company Number: CN-MERCK-1102CHN00009

PATIENT
  Age: 56 Year
  Sex: Male

DRUGS (2)
  1. CASPOFUNGIN ACETATE [Suspect]
     Indication: ASPERGILLOSIS
     Route: 042
  2. VORICONAZOLE [Concomitant]
     Indication: ASPERGILLOSIS
     Route: 041

REACTIONS (3)
  - CEREBRAL ASPERGILLOSIS [None]
  - HEADACHE [None]
  - COMA [None]
